FAERS Safety Report 8917567 (Version 5)
Quarter: 2013Q1

REPORT INFORMATION
  Report Type: Spontaneous
  Country: US (occurrence: US)
  Receive Date: 20121119
  Receipt Date: 20130204
  Transmission Date: 20140127
  Serious: Yes (Hospitalization, Other)
  Sender: FDA-Public Use
  Company Number: US-009507513-1211USA003682

PATIENT
  Sex: Female

DRUGS (3)
  1. PEGINTRON [Suspect]
     Indication: HEPATITIS C
     Dosage: UNK
     Dates: start: 20121030, end: 20130111
  2. RIBAVIRIN [Suspect]
     Indication: HEPATITIS C
     Dosage: UNK
     Route: 048
     Dates: start: 20121030, end: 20130111
  3. TELAPREVIR [Suspect]
     Indication: HEPATITIS C
     Dosage: UNK
     Dates: start: 20121030, end: 20130111

REACTIONS (32)
  - Muscle spasms [Unknown]
  - Decreased appetite [Unknown]
  - Upper respiratory tract infection [Unknown]
  - Arthralgia [Unknown]
  - Pain [Unknown]
  - Somnolence [Unknown]
  - Back pain [Unknown]
  - Pain [Unknown]
  - Injection site erythema [Unknown]
  - Psychomotor hyperactivity [Unknown]
  - Injection site pain [Unknown]
  - Gait disturbance [Unknown]
  - Rhinitis [Unknown]
  - Vomiting [Unknown]
  - Fatigue [Unknown]
  - Abdominal discomfort [Unknown]
  - Sinusitis [Unknown]
  - Dyspnoea [Unknown]
  - Anxiety [Unknown]
  - Rash macular [Unknown]
  - Rash [Unknown]
  - Anxiety [Unknown]
  - Malaise [Unknown]
  - Fatigue [Unknown]
  - Headache [Unknown]
  - Anger [Unknown]
  - Anxiety [Unknown]
  - Decreased appetite [Unknown]
  - Alopecia [Unknown]
  - Haemorrhoids [Unknown]
  - Myalgia [Unknown]
  - Arthralgia [Unknown]
